FAERS Safety Report 26134816 (Version 1)
Quarter: 2025Q4

REPORT INFORMATION
  Report Type: Report from Study
  Country: US (occurrence: US)
  Receive Date: 20251209
  Receipt Date: 20251209
  Transmission Date: 20260118
  Serious: Yes (Hospitalization)
  Sender: BAYER HEALTHCARE LLC
  Company Number: US-BAYER-2025A160024

PATIENT
  Age: 83 Year
  Sex: Female
  Weight: 82.993 kg

DRUGS (24)
  1. ADEMPAS [Suspect]
     Active Substance: RIOCIGUAT
     Indication: Pulmonary arterial hypertension
     Dosage: UNK
     Dates: start: 20231106
  2. ADEMPAS [Suspect]
     Active Substance: RIOCIGUAT
     Indication: Pulmonary arterial hypertension
     Dosage: 2.5 MG, TID
     Route: 048
  3. ASPIRIN [Suspect]
     Active Substance: ASPIRIN
  4. PROTONIX [Concomitant]
     Active Substance: PANTOPRAZOLE SODIUM
  5. NEBIVOLOL [Concomitant]
     Active Substance: NEBIVOLOL
  6. VITAMIN C [Concomitant]
     Active Substance: ASCORBIC ACID
  7. CALCIUM CITRATE\VITAMIN D [Concomitant]
     Active Substance: CALCIUM CITRATE\VITAMIN D
  8. CLARITIN [Concomitant]
     Active Substance: LORATADINE
  9. Paroxetine extended release [Concomitant]
  10. ELIQUIS [Concomitant]
     Active Substance: APIXABAN
  11. VITAMIN D3 [Concomitant]
     Active Substance: CHOLECALCIFEROL
  12. BYSTOLIC [Concomitant]
     Active Substance: NEBIVOLOL HYDROCHLORIDE
  13. Ester c [Concomitant]
  14. MAGNESIUM [Concomitant]
     Active Substance: MAGNESIUM
  15. LASIX [Concomitant]
     Active Substance: FUROSEMIDE
  16. OPSUMIT [Concomitant]
     Active Substance: MACITENTAN
  17. TRAVATAN Z [Concomitant]
     Active Substance: TRAVOPROST
  18. MINERALS\VITAMINS [Concomitant]
     Active Substance: MINERALS\VITAMINS
  19. METOPROLOL SUCCINATE [Concomitant]
     Active Substance: METOPROLOL SUCCINATE
  20. FAMOTIDINE [Concomitant]
     Active Substance: FAMOTIDINE
  21. OXYGEN [Concomitant]
     Active Substance: OXYGEN
  22. ALPRAZOLAM [Concomitant]
     Active Substance: ALPRAZOLAM
  23. DIGOXIN [Concomitant]
     Active Substance: DIGOXIN
  24. BRIMONIDINE TARTRATE [Concomitant]
     Active Substance: BRIMONIDINE TARTRATE

REACTIONS (1)
  - Haemorrhage [None]

NARRATIVE: CASE EVENT DATE: 20251114
